FAERS Safety Report 7478986-0 (Version None)
Quarter: 2011Q2

REPORT INFORMATION
  Report Type: 
  Country: None (occurrence: None)
  Receive Date: 20110513
  Receipt Date: 20110317
  Transmission Date: 20111010
  Serious: Yes (Other)
  Sender: FDA-Public Use
  Company Number: PHHY2011ZA21817

PATIENT

DRUGS (4)
  1. GLEEVEC [Suspect]
     Dosage: 400 MG, UNK
     Dates: start: 20081215, end: 20090120
  2. GLEEVEC [Suspect]
     Indication: CHRONIC MYELOID LEUKAEMIA
     Dosage: 400 MG, UNK
     Route: 048
     Dates: start: 20081021, end: 20081201
  3. GLEEVEC [Suspect]
     Dosage: 200 MG, DAILY
     Route: 048
     Dates: start: 20090630
  4. GLEEVEC [Suspect]
     Dosage: UNK
     Route: 048
     Dates: start: 20090217

REACTIONS (13)
  - RASH [None]
  - DYSPEPSIA [None]
  - HAEMATOCRIT DECREASED [None]
  - HAEMOGLOBIN DECREASED [None]
  - RED BLOOD CELL COUNT DECREASED [None]
  - ABDOMINAL PAIN [None]
  - WHITE BLOOD CELL COUNT DECREASED [None]
  - PROTEIN TOTAL DECREASED [None]
  - LYMPHOCYTE COUNT DECREASED [None]
  - GENERALISED OEDEMA [None]
  - NAUSEA [None]
  - INFECTION [None]
  - INFLUENZA LIKE ILLNESS [None]
